FAERS Safety Report 8672883 (Version 5)
Quarter: 2013Q4

REPORT INFORMATION
  Report Type: Spontaneous
  Country: US (occurrence: US)
  Receive Date: 20120719
  Receipt Date: 20131227
  Transmission Date: 20140711
  Serious: No
  Sender: FDA-Public Use
  Company Number: US-PFIZER INC-2012170940

PATIENT
  Age: 81 Year
  Sex: Female
  Weight: 68.93 kg

DRUGS (13)
  1. LYRICA [Suspect]
     Indication: NEUROPATHY PERIPHERAL
     Dosage: 75 MG, 3X/DAY
     Route: 048
  2. LYRICA [Suspect]
     Dosage: 75 MG, 2 PO BID
     Route: 048
  3. NORVASC [Concomitant]
     Dosage: 10 MG, DAILY (EVERY DAY)
     Route: 048
  4. GLUCOTROL XL [Concomitant]
     Dosage: 5 MG, DAILY
     Route: 048
  5. VICODIN [Concomitant]
     Dosage: [HYDROCODONE 5MG]/[ACETAMINOPHEN 500MG], 3X/DAY, PRN
     Route: 048
  6. LEVOTHROID [Concomitant]
     Dosage: 75 UG, 1X/DAY
     Route: 048
  7. LISINOPRIL [Concomitant]
     Dosage: 20 MG, DAILY
  8. CYMBALTA [Concomitant]
     Dosage: UNK
  9. METFORMIN HYDROCHLORIDE [Concomitant]
     Dosage: 500 MG, 2X/DAY
     Route: 048
  10. PREMARIN [Concomitant]
     Dosage: 0.625 MG, EVERY DAY
     Route: 048
  11. ASPIRIN [Concomitant]
     Dosage: 81 MG, 1X/DAY
     Route: 048
  12. AMBIEN [Concomitant]
     Indication: INSOMNIA
     Dosage: 10 MG, AS NEEDED (NIGHTLY AT BEDTIME)
     Route: 048
  13. LISINOPRIL W/HYDROCHLOROTHIAZIDE [Concomitant]
     Dosage: [LISINOPRIL 20MG]/[HYDROCHLOROTHIAZIDE 25MG], DAILY

REACTIONS (3)
  - Somnolence [Unknown]
  - Balance disorder [Unknown]
  - Drug ineffective [Unknown]
